FAERS Safety Report 4602737-8 (Version None)
Quarter: 2005Q1

REPORT INFORMATION
  Report Type: 
  Country: None (occurrence: None)
  Receive Date: 20050307
  Receipt Date: 20050218
  Transmission Date: 20050727
  Serious: Yes (Death, Other)
  Sender: FDA-Public Use
  Company Number: 2005036652

PATIENT
  Age: 80 Year
  Sex: Male

DRUGS (1)
  1. SULPERAZON (SULBACTAM, CEFOPERAZONE) [Suspect]
     Indication: INFECTION
     Dosage: INTRAVENOUS
     Route: 042

REACTIONS (3)
  - ANAPHYLACTIC SHOCK [None]
  - INFECTION [None]
  - OBSTRUCTIVE AIRWAYS DISORDER [None]
